FAERS Safety Report 9014299 (Version 3)
Quarter: 2013Q1

REPORT INFORMATION
  Report Type: Report from Study
  Country: US (occurrence: US)
  Receive Date: 20130115
  Receipt Date: 20130201
  Transmission Date: 20140127
  Serious: Yes (Death)
  Sender: FDA-Public Use
  Company Number: US-PFIZER INC-2013011599

PATIENT
  Age: 10 Year
  Sex: Female
  Weight: 20.3 kg

DRUGS (3)
  1. TEMSIROLIMUS [Suspect]
     Indication: MEDULLOBLASTOMA
     Dosage: 35 MG/M2, DOSE IV OVER 30 MINUTES ON DAYS 1 + 8; CYCLE = 21 DAYS: (MAX=12 MONTHS)
     Route: 042
     Dates: start: 20120918, end: 20121227
  2. IRINOTECAN HCL [Suspect]
     Indication: MEDULLOBLASTOMA
     Dosage: 90 MG/M2, ON DAYS 1-5; CYCLE = 21 DAYS: (MAX=12 MONTHS)
     Route: 048
     Dates: start: 20120918, end: 20121230
  3. TEMOZOLOMIDE [Suspect]
     Indication: MEDULLOBLASTOMA
     Dosage: 150 MG/M2, ON DAYS 1-5; CYCLE = 21 DAYS: (MAX=12 MONTHS)
     Route: 048
     Dates: start: 20120918, end: 20121230

REACTIONS (1)
  - Death [Fatal]
